FAERS Safety Report 11115410 (Version 1)
Quarter: 2015Q2

REPORT INFORMATION
  Report Type: Spontaneous
  Country: US (occurrence: None)
  Receive Date: 20150511
  Receipt Date: 20150511
  Transmission Date: 20150821
  Serious: No
  Sender: FDA-Public Use
  Company Number: 201502IM009726

PATIENT
  Sex: Female

DRUGS (13)
  1. BIOTIN [Concomitant]
     Active Substance: BIOTIN
  2. LOTENSIN [Concomitant]
     Active Substance: BENAZEPRIL HYDROCHLORIDE
  3. FLONASE [Concomitant]
     Active Substance: FLUTICASONE PROPIONATE
  4. MULTIVITAMIN [Concomitant]
     Active Substance: VITAMINS
  5. LANTUS [Concomitant]
     Active Substance: INSULIN GLARGINE
  6. ESBRIET [Suspect]
     Active Substance: PIRFENIDONE
     Indication: IDIOPATHIC PULMONARY FIBROSIS
     Route: 048
  7. MUCINEX [Concomitant]
     Active Substance: GUAIFENESIN
  8. SINGULAIR [Concomitant]
     Active Substance: MONTELUKAST SODIUM
  9. PREDNISONE. [Concomitant]
     Active Substance: PREDNISONE
  10. DUONED NEBULIZER [Concomitant]
  11. SUSTAIN [Concomitant]
  12. PROTONIX [Concomitant]
     Active Substance: PANTOPRAZOLE SODIUM
  13. OSTEOBIFLEX [Concomitant]

REACTIONS (4)
  - Lip swelling [None]
  - Dyspepsia [None]
  - Nausea [None]
  - Blood glucose increased [None]
